FAERS Safety Report 10066390 (Version 1)
Quarter: 2014Q2

REPORT INFORMATION
  Report Type: Spontaneous
  Country: US (occurrence: US)
  Receive Date: 20140408
  Receipt Date: 20140408
  Transmission Date: 20141212
  Serious: No
  Sender: FDA-Public Use
  Company Number: US-PFIZER INC-2014096983

PATIENT
  Age: 48 Year
  Sex: Female
  Weight: 92.06 kg

DRUGS (8)
  1. NEURONTIN [Suspect]
     Indication: NEUROPATHY PERIPHERAL
     Dosage: 800 MG, 3X/DAY
     Dates: start: 2012
  2. XANAX [Suspect]
     Indication: ANXIETY
     Dosage: 1 MG, 2X/DAY
  3. XANAX [Suspect]
     Indication: DEPRESSION
  4. HYDROXYZINE [Concomitant]
     Dosage: UNK
  5. NEXIUM [Concomitant]
     Dosage: 40 MG, UNK
  6. LOPRESSOR [Concomitant]
     Indication: HYPERTENSION
     Dosage: 100 MG, UNK
  7. DIOVAN [Concomitant]
     Dosage: 300 MG, DAILY
  8. TRAZODONE [Concomitant]
     Dosage: 50 MG, UNK

REACTIONS (1)
  - Weight increased [Unknown]
